FAERS Safety Report 8383011-3 (Version None)
Quarter: 2012Q2

REPORT INFORMATION
  Report Type: 
  Country: None (occurrence: None)
  Receive Date: 20120524
  Receipt Date: 20120518
  Transmission Date: 20120825
  Serious: Yes (Hospitalization, Other)
  Sender: FDA-Public Use
  Company Number: US-PFIZER INC-2012042253

PATIENT
  Sex: Female

DRUGS (9)
  1. OMEPRAZOLE [Concomitant]
     Indication: GASTROOESOPHAGEAL REFLUX DISEASE
     Dosage: UNK
     Dates: start: 20091001, end: 20100301
  2. DIAZEPAM [Concomitant]
     Indication: ANXIETY
     Dosage: UNK
     Dates: start: 20040601, end: 20100301
  3. ADVAIR DISKUS 100/50 [Concomitant]
     Indication: ASTHMA
     Dosage: UNK
     Dates: start: 20040901, end: 20100401
  4. LAMOTRIGINE [Concomitant]
     Indication: CONVULSION
     Dosage: UNK
     Dates: start: 20081101, end: 20100401
  5. TRAZODONE [Concomitant]
     Indication: DEPRESSION
     Dosage: UNK
     Dates: start: 20041101, end: 20100301
  6. QVAR 40 [Concomitant]
     Indication: DYSPNOEA
     Dosage: UNK
     Dates: start: 20080101, end: 20100301
  7. HYDROCODONE BITARTRATE + ACETAMINOPHEN [Concomitant]
     Indication: ANALGESIC THERAPY
     Dosage: UNK
     Dates: start: 20090201, end: 20100401
  8. ANTABUSE [Concomitant]
     Indication: ALCOHOLISM
     Dosage: UNK
     Dates: start: 20090601, end: 20100301
  9. CHANTIX [Suspect]
     Indication: SMOKING CESSATION THERAPY
     Dosage: 1 MG, 2X/DAY
     Dates: start: 20100128, end: 20100415

REACTIONS (8)
  - MENTAL DISORDER [None]
  - SUICIDE ATTEMPT [None]
  - ABNORMAL BEHAVIOUR [None]
  - PANIC ATTACK [None]
  - EMOTIONAL DISTRESS [None]
  - AGGRESSION [None]
  - DEPRESSION [None]
  - ANXIETY [None]
